FAERS Safety Report 19229675 (Version 1)
Quarter: 2021Q2

REPORT INFORMATION
  Report Type: Spontaneous
  Country: ES (occurrence: ES)
  Receive Date: 20210507
  Receipt Date: 20210507
  Transmission Date: 20210717
  Serious: Yes (Death, Other)
  Sender: FDA-Public Use
  Company Number: ES-AMGEN-ESPSP2021068754

PATIENT
  Age: 49 Year
  Sex: Female

DRUGS (11)
  1. AZATHIOPRINE. [Concomitant]
     Active Substance: AZATHIOPRINE
  2. VINCRISTINE [Concomitant]
     Active Substance: VINCRISTINE
  3. CYCLOPHOSPHAMIDE. [Concomitant]
     Active Substance: CYCLOPHOSPHAMIDE
  4. ROMIPLOSTIM [Suspect]
     Active Substance: ROMIPLOSTIM
     Indication: IMMUNE THROMBOCYTOPENIA
     Dosage: UNK
     Route: 065
  5. HYDROXYCHLOROQUINE [Concomitant]
     Active Substance: HYDROXYCHLOROQUINE
  6. MYCOPHENOLATE MOFETIL. [Concomitant]
     Active Substance: MYCOPHENOLATE MOFETIL
  7. RITUXIMAB. [Concomitant]
     Active Substance: RITUXIMAB
  8. OSELTAMIVIR [Concomitant]
     Active Substance: OSELTAMIVIR
  9. TACROLIMUS. [Concomitant]
     Active Substance: TACROLIMUS
  10. IMMUNOGLOBULIN I.V [Concomitant]
     Active Substance: HUMAN IMMUNOGLOBULIN G
  11. ELTROMBOPAG [Concomitant]
     Active Substance: ELTROMBOPAG

REACTIONS (2)
  - Drug ineffective [Unknown]
  - Haemorrhage intracranial [Fatal]
